FAERS Safety Report 6649769-6 (Version None)
Quarter: 2010Q1

REPORT INFORMATION
  Report Type: 
  Country: None (occurrence: None)
  Receive Date: 20100322
  Receipt Date: 20100305
  Transmission Date: 20100710
  Serious: Yes (Life-Threatening)
  Sender: FDA-Public Use
  Company Number: 1-21557475

PATIENT
  Age: 79 Year
  Sex: Female
  Weight: 138.6 kg

DRUGS (9)
  1. ROCURONIUM BROMIDE [Suspect]
     Indication: SURGERY
     Dosage: 25 MG (TOTAL DOSE),
  2. FENTANYL [Suspect]
     Indication: INDUCTION OF ANAESTHESIA
     Dosage: 100 MCG, ONCE,
  3. TRICOR [Concomitant]
  4. METOPROLOL TARTRATE [Concomitant]
  5. DIOVAN [Concomitant]
  6. ZOCOR [Concomitant]
  7. NEXIUM [Concomitant]
  8. GLIPIZIDE [Concomitant]
  9. COUMADIN [Concomitant]

REACTIONS (2)
  - ASTHENIA [None]
  - RESPIRATORY FAILURE [None]
